FAERS Safety Report 5937779-3 (Version None)
Quarter: 2008Q4

REPORT INFORMATION
  Report Type: 
  Country: None (occurrence: None)
  Receive Date: 20081031
  Receipt Date: 20081027
  Transmission Date: 20090506
  Serious: Yes (Death)
  Sender: FDA-Public Use
  Company Number: FR-ASTRAZENECA-2008CG01566

PATIENT
  Age: 15629 Day
  Sex: Female

DRUGS (6)
  1. NAROPEINE [Suspect]
     Indication: EPIDURAL ANAESTHESIA
     Route: 008
     Dates: start: 20081015, end: 20081015
  2. NAROPEINE [Suspect]
     Indication: CAESAREAN SECTION
     Route: 008
     Dates: start: 20081015, end: 20081015
  3. NAROPEINE [Suspect]
     Route: 008
     Dates: start: 20081015, end: 20081015
  4. NAROPEINE [Suspect]
     Route: 008
     Dates: start: 20081015, end: 20081015
  5. NAROPEINE [Suspect]
     Route: 008
     Dates: start: 20081015
  6. NAROPEINE [Suspect]
     Route: 008
     Dates: start: 20081015

REACTIONS (2)
  - CARDIAC ARREST [None]
  - CONVULSION [None]
